FAERS Safety Report 6152102-X (Version None)
Quarter: 2009Q2

REPORT INFORMATION
  Report Type: 
  Country: None (occurrence: None)
  Receive Date: 20090410
  Receipt Date: 20090402
  Transmission Date: 20091009
  Serious: Yes (Other)
  Sender: FDA-Public Use
  Company Number: US-GENENTECH-280777

PATIENT
  Sex: Male

DRUGS (6)
  1. RITUXAN [Suspect]
     Indication: WALDENSTROM'S MACROGLOBULINAEMIA
     Dosage: UNK
     Route: 042
     Dates: start: 20060315, end: 20090327
  2. VICODIN [Concomitant]
     Indication: ARTHRALGIA
     Dosage: UNK
  3. STEROID (NAME UNKNOWN) [Concomitant]
     Indication: PREMEDICATION
  4. TYLENOL [Concomitant]
     Indication: PREMEDICATION
  5. BENADRYL [Concomitant]
     Indication: PREMEDICATION
  6. DEXAMETHASONE 4MG TAB [Concomitant]
     Indication: PREMEDICATION

REACTIONS (3)
  - EPISTAXIS [None]
  - INTRAOCULAR PRESSURE INCREASED [None]
  - LETHARGY [None]
